FAERS Safety Report 9705677 (Version 3)
Quarter: 2015Q3

REPORT INFORMATION
  Report Type: Spontaneous
  Country: US (occurrence: US)
  Receive Date: 20131122
  Receipt Date: 20150803
  Transmission Date: 20151125
  Serious: No
  Sender: FDA-Public Use
  Company Number: US-GILEAD-2008-0017275

PATIENT
  Sex: Female
  Weight: 77.11 kg

DRUGS (15)
  1. FOLIC ACID. [Concomitant]
     Active Substance: FOLIC ACID
     Dates: start: 20050321
  2. GABAPENTIN. [Concomitant]
     Active Substance: GABAPENTIN
     Dates: start: 20070604
  3. LETAIRIS [Suspect]
     Active Substance: AMBRISENTAN
     Indication: PULMONARY ARTERIAL HYPERTENSION
  4. TRAMADOL/ACETAMINOPHEN [Concomitant]
     Active Substance: ACETAMINOPHEN\TRAMADOL
     Dates: start: 20050821
  5. FUROSEMIDE. [Concomitant]
     Active Substance: FUROSEMIDE
     Dates: start: 20050321
  6. PROSTACYCLIN [Concomitant]
     Active Substance: EPOPROSTENOL
     Dosage: 32 NG/KG/MIN
     Dates: start: 20070827
  7. VITAMIN B12 [Concomitant]
     Active Substance: CYANOCOBALAMIN
     Dates: start: 20050321
  8. LEVOTHYROXINE. [Concomitant]
     Active Substance: LEVOTHYROXINE
     Dates: start: 20050321
  9. SILDENAFIL CITRATE. [Concomitant]
     Active Substance: SILDENAFIL CITRATE
     Dates: start: 20080403
  10. PRISTIQ EXTENDED RELEASE [Concomitant]
     Active Substance: DESVENLAFAXINE SUCCINATE
  11. OXYGEN. [Concomitant]
     Active Substance: OXYGEN
     Dates: start: 20050321
  12. WARFARIN [Concomitant]
     Active Substance: WARFARIN
     Dosage: MWF
     Dates: start: 20070103
  13. ALPRAZOLAM. [Concomitant]
     Active Substance: ALPRAZOLAM
     Dates: start: 20070103
  14. LOPERAMIDE [Concomitant]
     Active Substance: LOPERAMIDE
     Dates: start: 20050321
  15. SPIRONOLACTONE. [Concomitant]
     Active Substance: SPIRONOLACTONE
     Dates: start: 20061025

REACTIONS (2)
  - Flushing [Recovered/Resolved]
  - Pain in extremity [Recovered/Resolved]
